FAERS Safety Report 4514654-2 (Version None)
Quarter: 2004Q4

REPORT INFORMATION
  Report Type: 
  Country: None (occurrence: None)
  Receive Date: 20041126
  Receipt Date: 20041115
  Transmission Date: 20050328
  Serious: Yes (Hospitalization)
  Sender: FDA-Public Use
  Company Number: RENA-11199

PATIENT
  Age: 63 Year
  Sex: Male
  Weight: 79 kg

DRUGS (12)
  1. RENAGEL [Suspect]
     Indication: HYPERPHOSPHATAEMIA
     Dates: start: 20041001, end: 20041004
  2. APROVEL [Concomitant]
  3. LASILIX [Concomitant]
  4. DIFRAREL [Concomitant]
  5. KAYEXALATE [Concomitant]
  6. INSUMAN [Concomitant]
  7. ARANESP [Concomitant]
  8. AMLOR [Concomitant]
  9. OROCAL [Concomitant]
  10. ASPEGIC 325 [Concomitant]
  11. EXTRANEAL [Concomitant]
  12. CALCIDA [Concomitant]

REACTIONS (1)
  - ACUTE GENERALISED EXANTHEMATOUS PUSTULOSIS [None]
